FAERS Safety Report 15482826 (Version 1)
Quarter: 2018Q4

REPORT INFORMATION
  Report Type: Spontaneous
  Country: GB (occurrence: GB)
  Receive Date: 20181010
  Receipt Date: 20181010
  Transmission Date: 20190205
  Serious: Yes (Other)
  Sender: FDA-Public Use
  Company Number: GB-TEVA-2018-GB-962604

PATIENT
  Age: 54 Year
  Sex: Female
  Weight: 73.02 kg

DRUGS (2)
  1. LORATADINE. [Suspect]
     Active Substance: LORATADINE
     Route: 048
     Dates: start: 201808, end: 2018
  2. SERTRALINE [Suspect]
     Active Substance: SERTRALINE HYDROCHLORIDE
     Indication: ANXIETY
     Route: 048
     Dates: start: 201710

REACTIONS (2)
  - Fear [Recovered/Resolved]
  - Flashback [Recovered/Resolved]

NARRATIVE: CASE EVENT DATE: 201808
